FAERS Safety Report 15778732 (Version 1)
Quarter: 2019Q1

REPORT INFORMATION
  Report Type: Spontaneous
  Country: US (occurrence: US)
  Receive Date: 20190101
  Receipt Date: 20190101
  Transmission Date: 20190417
  Serious: Yes (Hospitalization, Other)
  Sender: FDA-Public Use
  Company Number: US-AUROBINDO-AUR-APL-2018-063075

PATIENT
  Age: 38 Year
  Sex: Male

DRUGS (3)
  1. COTRIMOXAZOLE [Suspect]
     Active Substance: SULFAMETHOXAZOLE\TRIMETHOPRIM
     Indication: SINUSITIS
     Dosage: UNK
     Route: 065
  2. PREDNISONE. [Concomitant]
     Active Substance: PREDNISONE
     Indication: SINUSITIS
     Dosage: UNK
  3. AMOXICILLIN+CLAVULANIC ACID [Suspect]
     Active Substance: AMOXICILLIN\CLAVULANIC ACID
     Indication: SINUSITIS
     Dosage: UNK
     Route: 065

REACTIONS (16)
  - Swelling face [Unknown]
  - Tachycardia [Unknown]
  - Rash erythematous [Unknown]
  - Hypersensitivity myocarditis [Unknown]
  - Cardiogenic shock [Unknown]
  - Dizziness [Unknown]
  - Drug reaction with eosinophilia and systemic symptoms [Unknown]
  - Pyrexia [Unknown]
  - Metabolic acidosis [Unknown]
  - Drug ineffective [Unknown]
  - Thrombocytopenia [Recovered/Resolved]
  - Rash [Unknown]
  - Lymphadenopathy [Unknown]
  - Hyponatraemia [Recovered/Resolved]
  - Hypotension [Unknown]
  - Hypocalcaemia [Recovered/Resolved]
